FAERS Safety Report 6154425-7 (Version None)
Quarter: 2009Q2

REPORT INFORMATION
  Report Type: 
  Country: None (occurrence: None)
  Receive Date: 20090414
  Receipt Date: 20090408
  Transmission Date: 20091009
  Serious: Yes (Death, Other)
  Sender: FDA-Public Use
  Company Number: US-PFIZER INC-2005055112

PATIENT
  Sex: Female
  Weight: 54 kg

DRUGS (8)
  1. PROVERA [Suspect]
     Indication: HORMONE REPLACEMENT THERAPY
     Dosage: UNK
     Route: 048
     Dates: start: 19850101, end: 19960801
  2. PREMARIN [Suspect]
     Indication: HORMONE REPLACEMENT THERAPY
     Dosage: UNK
     Route: 065
     Dates: start: 19820101, end: 19970701
  3. PREMPRO [Suspect]
     Indication: HORMONE REPLACEMENT THERAPY
     Dosage: UNK
     Route: 065
     Dates: start: 19970701, end: 20020201
  4. SYNTHROID [Concomitant]
     Indication: THYROID THERAPY
     Dosage: 125 UG, UNK
     Dates: start: 19800101, end: 20060101
  5. NORVASC [Concomitant]
     Indication: BLOOD PRESSURE
     Dosage: UNK
     Dates: start: 19800101, end: 20060101
  6. LANOXIN [Concomitant]
     Indication: CARDIAC DISORDER
     Dosage: 0.25 MG, UNK
     Dates: start: 19800101, end: 20060101
  7. AMOXIL [Concomitant]
     Indication: MICTURITION DISORDER
     Dosage: UNK
     Dates: start: 19911101, end: 20040401
  8. DETROL [Concomitant]
     Indication: MICTURITION DISORDER
     Dosage: UNK
     Dates: start: 20001001, end: 20021001

REACTIONS (1)
  - BREAST CANCER METASTATIC [None]
